FAERS Safety Report 8019992-7 (Version None)
Quarter: 2012Q1

REPORT INFORMATION
  Report Type: 
  Country: None (occurrence: None)
  Receive Date: 20120103
  Receipt Date: 20111227
  Transmission Date: 20120608
  Serious: Yes (Hospitalization)
  Sender: FDA-Public Use
  Company Number: US-BAYER-2011-065820

PATIENT
  Age: 28 Year
  Sex: Female
  Weight: 82 kg

DRUGS (1)
  1. YAZ [Suspect]
     Indication: CONTRACEPTION
     Dosage: UNK
     Dates: start: 20090622, end: 20090727

REACTIONS (9)
  - EMOTIONAL DISTRESS [None]
  - THROMBOSIS MESENTERIC VESSEL [None]
  - DIARRHOEA [None]
  - ANHEDONIA [None]
  - COLITIS ISCHAEMIC [None]
  - HAEMATOCHEZIA [None]
  - ABDOMINAL PAIN LOWER [None]
  - INJURY [None]
  - PAIN [None]
